APPROVED DRUG PRODUCT: BROMOCRIPTINE MESYLATE
Active Ingredient: BROMOCRIPTINE MESYLATE
Strength: EQ 2.5MG BASE
Dosage Form/Route: TABLET;ORAL
Application: A074631 | Product #001 | TE Code: AB
Applicant: SANDOZ INC
Approved: Jan 13, 1998 | RLD: No | RS: No | Type: RX